APPROVED DRUG PRODUCT: PLATINOL-AQ
Active Ingredient: CISPLATIN
Strength: 0.5MG/ML
Dosage Form/Route: INJECTABLE;INJECTION
Application: N018057 | Product #003
Applicant: HQ SPECIALTY PHARMA CORP
Approved: Jul 18, 1984 | RLD: Yes | RS: No | Type: DISCN